FAERS Safety Report 16844682 (Version 1)
Quarter: 2019Q4

REPORT INFORMATION
  Report Type: Spontaneous
  Country: US (occurrence: US)
  Receive Date: 20190924
  Receipt Date: 20190924
  Transmission Date: 20200122
  Serious: Yes (Other)
  Sender: FDA-Public Use
  Company Number: None

PATIENT
  Sex: Female

DRUGS (1)
  1. PREGABALIN 75 MG [Suspect]
     Active Substance: PREGABALIN

REACTIONS (2)
  - Pain in extremity [None]
  - Hypoaesthesia [None]
